FAERS Safety Report 25603082 (Version 1)
Quarter: 2025Q3

REPORT INFORMATION
  Report Type: Report from Study
  Country: US (occurrence: US)
  Receive Date: 20250724
  Receipt Date: 20250724
  Transmission Date: 20251020
  Serious: Yes (Death)
  Sender: PFIZER
  Company Number: US-PFIZER INC-202500149451

PATIENT
  Age: 41 Year
  Sex: Female

DRUGS (1)
  1. TUKYSA [Suspect]
     Active Substance: TUCATINIB
     Route: 048
     Dates: start: 20250307

REACTIONS (1)
  - Death [Fatal]
